FAERS Safety Report 8242140-5 (Version None)
Quarter: 2012Q1

REPORT INFORMATION
  Report Type: 
  Country: None (occurrence: None)
  Receive Date: 20120314
  Receipt Date: 20110620
  Transmission Date: 20120608
  Serious: No
  Sender: FDA-Public Use
  Company Number: PHHY2011US55949

PATIENT
  Age: 32 Year
  Sex: Female

DRUGS (5)
  1. PRISTIQ [Concomitant]
  2. FANAPT [Suspect]
     Dosage: 8 MG, PER DAY, TAKES HALF TABLET TWICE IN A DAY
     Route: 048
  3. CLONAPIN (CLONAZEPAM) [Concomitant]
  4. AMBIEN [Concomitant]
  5. ROZEREM [Concomitant]

REACTIONS (2)
  - WRONG TECHNIQUE IN DRUG USAGE PROCESS [None]
  - OEDEMA PERIPHERAL [None]
